FAERS Safety Report 15057384 (Version 1)
Quarter: 2018Q2

REPORT INFORMATION
  Report Type: Report from Study
  Country: US (occurrence: US)
  Receive Date: 20180625
  Receipt Date: 20180625
  Transmission Date: 20180711
  Serious: Yes (Other)
  Sender: FDA-Public Use
  Company Number: US-BRISTOL-MYERS SQUIBB COMPANY-BMS-2018-052209

PATIENT
  Sex: Female
  Weight: 55.79 kg

DRUGS (1)
  1. ABATACEPT [Suspect]
     Active Substance: ABATACEPT
     Indication: RHEUMATOID ARTHRITIS
     Dosage: 125 MG, QWK
     Route: 058
     Dates: start: 2008

REACTIONS (7)
  - Dyspnoea [Unknown]
  - Abdominal pain upper [Recovering/Resolving]
  - Appendicitis [Unknown]
  - Drug dose omission [Unknown]
  - Pain [Unknown]
  - Bone pain [Unknown]
  - Product storage error [Unknown]
